FAERS Safety Report 7797763-4 (Version None)
Quarter: 2011Q4

REPORT INFORMATION
  Report Type: 
  Country: None (occurrence: None)
  Receive Date: 20111005
  Receipt Date: 20110929
  Transmission Date: 20120403
  Serious: Yes (Other)
  Sender: FDA-Public Use
  Company Number: DE-AMGEN-DEUSP2011042822

PATIENT
  Sex: Male

DRUGS (2)
  1. PROLIA [Suspect]
     Indication: METASTASES TO BONE
     Dosage: 60 MG, UNK
     Dates: start: 20110809
  2. XGEVA [Suspect]
     Indication: METASTASES TO BONE
     Dosage: UNK

REACTIONS (1)
  - DRUG NAME CONFUSION [None]
